FAERS Safety Report 4339941-2 (Version None)
Quarter: 2004Q2

REPORT INFORMATION
  Report Type: 
  Country: None (occurrence: None)
  Receive Date: 20040416
  Receipt Date: 20040331
  Transmission Date: 20050107
  Serious: Yes (Other)
  Sender: FDA-Public Use
  Company Number: FR-GLAXOSMITHKLINE-B0328597A

PATIENT
  Age: 55 Year
  Sex: Male

DRUGS (5)
  1. SERETIDE [Suspect]
     Indication: EMPHYSEMA
     Dosage: 1PUFF TWICE PER DAY
     Route: 055
     Dates: start: 20040329, end: 20040330
  2. VENTOLIN [Concomitant]
     Indication: ASTHMA
     Route: 055
  3. CORGARD [Concomitant]
     Dosage: 1TAB PER DAY
     Route: 048
  4. KARDEGIC [Concomitant]
     Dosage: 1UNIT PER DAY
     Route: 048
  5. OMEPRAZOLE [Concomitant]
     Dosage: 1UNIT PER DAY
     Route: 048

REACTIONS (3)
  - PAIN IN JAW [None]
  - PARALYSIS [None]
  - SENSORY LOSS [None]
